FAERS Safety Report 26204397 (Version 1)
Quarter: 2025Q4

REPORT INFORMATION
  Report Type: Spontaneous
  Country: US (occurrence: US)
  Receive Date: 20251226
  Receipt Date: 20251226
  Transmission Date: 20260118
  Serious: Yes (Hospitalization, Other)
  Sender: BIOGEN
  Company Number: US-BIOGEN-2096451

PATIENT
  Age: 19 Year
  Sex: Female

DRUGS (2)
  1. ZURZUVAE [Suspect]
     Active Substance: ZURANOLONE
     Indication: Perinatal depression
  2. ZURZUVAE [Suspect]
     Active Substance: ZURANOLONE
     Dosage: DOSE REDUCED ON: 16-DEC-2025
     Dates: start: 20251107

REACTIONS (2)
  - Suicidal ideation [Unknown]
  - Psychotic disorder [Unknown]
